FAERS Safety Report 4820735-6 (Version None)
Quarter: 2005Q4

REPORT INFORMATION
  Report Type: 
  Country: None (occurrence: None)
  Receive Date: 20051103
  Receipt Date: 20051103
  Transmission Date: 20060501
  Serious: Yes (Disabling)
  Sender: FDA-Public Use
  Company Number: None

PATIENT
  Age: 32 Year
  Sex: Female
  Weight: 61.2356 kg

DRUGS (1)
  1. SEPTOCAINE [Suspect]
     Indication: DENTAL CARIES
     Dosage: WAS TOLD IT WAS A HALF DOSE   1

REACTIONS (7)
  - AGEUSIA [None]
  - ANAESTHETIC COMPLICATION [None]
  - BURNING SENSATION [None]
  - EMOTIONAL DISTRESS [None]
  - HYPOAESTHESIA ORAL [None]
  - INJECTION SITE PARAESTHESIA [None]
  - PAIN [None]
